FAERS Safety Report 9090315 (Version 1)
Quarter: 2013Q1

REPORT INFORMATION
  Report Type: Report from Study
  Country: US (occurrence: US)
  Receive Date: 20130131
  Receipt Date: 20130131
  Transmission Date: 20140127
  Serious: No
  Sender: FDA-Public Use
  Company Number: US-ABBOTT-12P-163-1011618-00

PATIENT
  Age: 58 Year
  Sex: Female

DRUGS (19)
  1. HUMIRA [Suspect]
     Indication: CROHN^S DISEASE
     Dosage: LOADING DOSE
     Dates: start: 20121114
  2. ZOFRAN [Concomitant]
     Indication: PRODUCT USED FOR UNKNOWN INDICATION
  3. JINTELI [Concomitant]
     Indication: HOT FLUSH
  4. SYNTHROID [Concomitant]
     Indication: PRODUCT USED FOR UNKNOWN INDICATION
  5. PROPRANOLOL [Concomitant]
     Indication: MITRAL VALVE PROLAPSE
  6. ASA [Concomitant]
     Indication: PRODUCT USED FOR UNKNOWN INDICATION
  7. TRAZODONE [Concomitant]
     Indication: INSOMNIA
  8. GELNIQUE [Concomitant]
     Indication: URINARY INCONTINENCE
     Route: 061
  9. ZANAFLEX [Concomitant]
     Indication: MUSCLE RELAXANT THERAPY
     Dosage: 1 MCG AND 6 MCG AT BEDTIME
  10. KLONOPIN [Concomitant]
     Indication: ANXIETY DISORDER
     Dosage: .5 MG IN AFTERNOON AND 1 MG AT BEDTIME
  11. ELMIRON [Concomitant]
     Indication: URINARY TRACT DISORDER
  12. SAVELLA [Concomitant]
     Indication: FIBROMYALGIA
  13. ASACOL [Concomitant]
     Indication: COLITIS
  14. MAGNESIUM [Concomitant]
     Indication: PRODUCT USED FOR UNKNOWN INDICATION
  15. VITAMIN D [Concomitant]
     Indication: PRODUCT USED FOR UNKNOWN INDICATION
  16. B-12 [Concomitant]
     Indication: PRODUCT USED FOR UNKNOWN INDICATION
     Route: 060
  17. FENTANYL PAIN PATCH [Concomitant]
     Indication: PRODUCT USED FOR UNKNOWN INDICATION
  18. ENDOCET [Concomitant]
     Indication: TORTICOLLIS
     Dosage: 10-325 MG
  19. DYSPORT (BOTOX) [Concomitant]
     Indication: MUSCLE TIGHTNESS
     Route: 050

REACTIONS (3)
  - Asthenia [Not Recovered/Not Resolved]
  - Nausea [Not Recovered/Not Resolved]
  - Chest pain [Not Recovered/Not Resolved]
